FAERS Safety Report 9038940 (Version 1)
Quarter: 2013Q1

REPORT INFORMATION
  Report Type: Spontaneous
  Country: US (occurrence: None)
  Receive Date: 20130123
  Receipt Date: 20130123
  Transmission Date: 20140127
  Serious: Yes (Other)
  Sender: FDA-Public Use
  Company Number: None

PATIENT
  Age: 59 Year
  Sex: Male
  Weight: 77.11 kg

DRUGS (2)
  1. ABILIFY [Suspect]
     Indication: AFFECTIVE DISORDER
     Dates: start: 200905, end: 200909
  2. ABILIFY [Suspect]
     Indication: DEPRESSION
     Dates: start: 200905, end: 200909

REACTIONS (2)
  - Dyskinesia [None]
  - Chills [None]
